FAERS Safety Report 8344481-X (Version None)
Quarter: 2012Q2

REPORT INFORMATION
  Report Type: 
  Country: None (occurrence: None)
  Receive Date: 20120508
  Receipt Date: 20120427
  Transmission Date: 20120825
  Serious: Yes (Other)
  Sender: FDA-Public Use
  Company Number: FR-ROCHE-1062965

PATIENT
  Age: 30 Year
  Sex: Male

DRUGS (1)
  1. ROFERON-A [Suspect]
     Indication: HODGKIN'S DISEASE
     Dates: start: 20120101, end: 20120417

REACTIONS (1)
  - ATRIOVENTRICULAR BLOCK [None]
